FAERS Safety Report 8576734-4 (Version None)
Quarter: 2012Q3

REPORT INFORMATION
  Report Type: 
  Country: None (occurrence: None)
  Receive Date: 20120807
  Receipt Date: 20120730
  Transmission Date: 20120928
  Serious: No
  Sender: FDA-Public Use
  Company Number: US-ASTRAZENECA-2012SE53733

PATIENT
  Age: 65 Year
  Sex: Male
  Weight: 95.3 kg

DRUGS (3)
  1. SYMBICORT [Suspect]
     Indication: ASTHMA
     Dosage: 160/4.5 MCG, TWO PUFFS BID
     Route: 055
  2. ALVESCO [Concomitant]
  3. DIOVAN [Concomitant]

REACTIONS (1)
  - ASTHMA [None]
